FAERS Safety Report 7268348-3 (Version None)
Quarter: 2010Q4

REPORT INFORMATION
  Report Type: 
  Country: None (occurrence: None)
  Receive Date: 20101206
  Receipt Date: 20101013
  Transmission Date: 20110411
  Serious: No
  Sender: FDA-Public Use
  Company Number: 2010SP054930

PATIENT
  Age: 22 Year
  Sex: Female

DRUGS (2)
  1. SAPHRIS [Suspect]
     Indication: SCHIZOPHRENIA
     Dosage: SL
     Route: 060
     Dates: start: 20100101
  2. LITHIUM CARBONATE [Concomitant]

REACTIONS (1)
  - WEIGHT INCREASED [None]
